FAERS Safety Report 15446129 (Version 1)
Quarter: 2018Q3

REPORT INFORMATION
  Report Type: Spontaneous
  Country: US (occurrence: US)
  Receive Date: 20180928
  Receipt Date: 20180928
  Transmission Date: 20181010
  Serious: No
  Sender: FDA-Public Use
  Company Number: US-AMGEN-USASP2018077426

PATIENT
  Age: 77 Year
  Sex: Female

DRUGS (3)
  1. EPLERENONE. [Concomitant]
     Active Substance: EPLERENONE
  2. LETROZOLE. [Concomitant]
     Active Substance: LETROZOLE
  3. PROLIA [Suspect]
     Active Substance: DENOSUMAB
     Indication: BONE LOSS
     Dosage: 60 MG, Q6MO
     Route: 065
     Dates: start: 2012

REACTIONS (6)
  - Arthritis [Unknown]
  - Intervertebral disc protrusion [Unknown]
  - Pain [Unknown]
  - Influenza [Unknown]
  - Fatigue [Unknown]
  - Bursitis [Unknown]

NARRATIVE: CASE EVENT DATE: 2017
